FAERS Safety Report 8220932-6 (Version None)
Quarter: 2012Q1

REPORT INFORMATION
  Report Type: 
  Country: None (occurrence: None)
  Receive Date: 20120320
  Receipt Date: 20120309
  Transmission Date: 20120608
  Serious: Yes (Hospitalization)
  Sender: FDA-Public Use
  Company Number: US-BRISTOL-MYERS SQUIBB COMPANY-16446460

PATIENT
  Age: 74 Year
  Sex: Male

DRUGS (5)
  1. SPRYCEL [Suspect]
     Dosage: STARTED 3 YEARS AGO
  2. ASPIRIN [Concomitant]
  3. DOXYCYCLINE [Concomitant]
  4. METOPROLOL SUCCINATE [Concomitant]
     Indication: BLOOD PRESSURE
  5. PRAVASTATIN SODIUM [Suspect]
     Indication: BLOOD CHOLESTEROL

REACTIONS (4)
  - DYSPNOEA [None]
  - FLUID RETENTION [None]
  - MUSCLE DISORDER [None]
  - RESPIRATORY TRACT INFECTION [None]
